FAERS Safety Report 10021245 (Version 2)
Quarter: 2014Q1

REPORT INFORMATION
  Report Type: Spontaneous
  Country: FR (occurrence: None)
  Receive Date: 20140313
  Receipt Date: 20140320
  Transmission Date: 20141002
  Serious: Yes (Hospitalization)
  Sender: FDA-Public Use
  Company Number: AUR-APL-2014-02644

PATIENT
  Age: 72 Year
  Sex: Female

DRUGS (3)
  1. FLECAINIDE [Suspect]
  2. IRBESARTAN [Suspect]
  3. HALOPERIDOL [Suspect]

REACTIONS (6)
  - Ventricular tachycardia [None]
  - Overdose [None]
  - Dyspnoea [None]
  - Cardiac failure congestive [None]
  - Bundle branch block left [None]
  - Systolic dysfunction [None]
